FAERS Safety Report 8776037 (Version 1)
Quarter: 2012Q4

REPORT INFORMATION
  Report Type: 
  Country: US (occurrence: US)
  Receive Date: 20120910
  Receipt Date: 20120910
  Transmission Date: 20130627
  Serious: No
  Sender: FDA-Public Use
  Company Number: US-JNJFOC-20120814378

PATIENT
  Age: 30 None
  Sex: Female
  Weight: 109.77 kg

DRUGS (3)
  1. FENTANYL TRANSDERMAL SYSTEM [Suspect]
     Indication: SURGICAL FAILURE
     Dosage: NDC# 0781-7242-55
     Route: 062
     Dates: start: 20120820
  2. FENTANYL TRANSDERMAL SYSTEM [Suspect]
     Indication: BREAST CANCER
     Dosage: NDC# 0781-7242-55
     Route: 062
     Dates: start: 20120820
  3. FENTANYL TRANSDERMAL SYSTEM [Suspect]
     Indication: PELVIC FRACTURE
     Dosage: NDC# 0781-7242-55
     Route: 062
     Dates: start: 20120820

REACTIONS (4)
  - Wrong technique in drug usage process [Not Recovered/Not Resolved]
  - Drug administered at inappropriate site [Not Recovered/Not Resolved]
  - Product quality issue [Unknown]
  - Product adhesion issue [None]
